FAERS Safety Report 9684559 (Version 3)
Quarter: 2015Q2

REPORT INFORMATION
  Report Type: Spontaneous
  Country: US (occurrence: US)
  Receive Date: 20131112
  Receipt Date: 20150507
  Transmission Date: 20150821
  Serious: Yes (Death, Other)
  Sender: FDA-Public Use
  Company Number: US-AMGEN-USASP2013035588

PATIENT
  Age: 83 Year
  Sex: Female

DRUGS (1)
  1. ARANESP [Suspect]
     Active Substance: DARBEPOETIN ALFA
     Indication: ANAEMIA
     Dosage: 500 MUG, UNK
     Route: 065
     Dates: end: 201304

REACTIONS (14)
  - Multi-organ failure [Unknown]
  - Aspiration [Unknown]
  - Platelet count decreased [Unknown]
  - Inflammation [Not Recovered/Not Resolved]
  - Mobility decreased [Not Recovered/Not Resolved]
  - Paralysis [Unknown]
  - Eyelid oedema [Not Recovered/Not Resolved]
  - Pain [Not Recovered/Not Resolved]
  - Death [Fatal]
  - Skin reaction [Unknown]
  - Blood disorder [Unknown]
  - Loss of consciousness [Unknown]
  - Haemoglobin abnormal [Not Recovered/Not Resolved]
  - Unevaluable event [Fatal]

NARRATIVE: CASE EVENT DATE: 20130909
